FAERS Safety Report 25260432 (Version 2)
Quarter: 2025Q2

REPORT INFORMATION
  Report Type: Report from Study
  Country: BR (occurrence: BR)
  Receive Date: 20250501
  Receipt Date: 20250506
  Transmission Date: 20250716
  Serious: Yes (Hospitalization, Other)
  Sender: NOVARTIS
  Company Number: BR-002147023-NVSC2025BR043129

PATIENT
  Sex: Female
  Weight: 64 kg

DRUGS (3)
  1. KISQALI [Suspect]
     Active Substance: RIBOCICLIB SUCCINATE
     Indication: Breast cancer female
     Dosage: 200 MG, TID ((63 TABLETS/MONTH)) (FOR 21 DAYS WITH A 7-DAY BREAK)
     Route: 048
     Dates: start: 20250221
  2. KISQALI [Suspect]
     Active Substance: RIBOCICLIB SUCCINATE
     Indication: Breast cancer metastatic
  3. SODIUM CHLORIDE [Concomitant]
     Active Substance: SODIUM CHLORIDE
     Indication: Product used for unknown indication
     Route: 065

REACTIONS (29)
  - Increased upper airway secretion [Recovering/Resolving]
  - Choking [Recovered/Resolved]
  - Weight decreased [Recovered/Resolved]
  - Breast cancer [Unknown]
  - Necrosis [Unknown]
  - Gallbladder enlargement [Unknown]
  - Red cell distribution width increased [Unknown]
  - White blood cell count decreased [Unknown]
  - Blood lactate dehydrogenase increased [Unknown]
  - Huntington^s disease [Unknown]
  - Taste disorder [Unknown]
  - Lung disorder [Unknown]
  - Breast mass [Unknown]
  - Skin hypertrophy [Unknown]
  - Lymphadenopathy [Unknown]
  - Nerve compression [Unknown]
  - Pulmonary mass [Unknown]
  - Hepatic mass [Unknown]
  - Focal nodular hyperplasia [Unknown]
  - Adenoma benign [Unknown]
  - Atelectasis [Unknown]
  - Umbilical hernia [Unknown]
  - Spinal osteoarthritis [Unknown]
  - Oestrogen receptor assay positive [Unknown]
  - Progesterone receptor assay positive [Unknown]
  - Human epidermal growth factor receptor negative [Unknown]
  - Lymphocyte count decreased [Unknown]
  - Monocyte count decreased [Unknown]
  - Vocal fold immobility [Unknown]
